FAERS Safety Report 15074991 (Version 2)
Quarter: 2023Q4

REPORT INFORMATION
  Report Type: Spontaneous
  Country: US (occurrence: US)
  Receive Date: 20180627
  Receipt Date: 20231128
  Transmission Date: 20240110
  Serious: Yes (Other)
  Sender: FDA-Public Use
  Company Number: US-SAOL THERAPEUTICS-2017SAO01770

PATIENT
  Sex: Female

DRUGS (3)
  1. BACLOFEN [Suspect]
     Active Substance: BACLOFEN
     Indication: Muscle spasticity
     Dosage: 99 ?G, \DAY
     Route: 037
  2. BACLOFEN [Suspect]
     Active Substance: BACLOFEN
     Dosage: UNK
  3. LIORESAL [Suspect]
     Active Substance: BACLOFEN
     Dosage: 118.99 ?G, \DAY
     Route: 037

REACTIONS (6)
  - Overdose [Recovered/Resolved]
  - Underdose [Recovered/Resolved]
  - Excessive granulation tissue [Recovered/Resolved]
  - Device physical property issue [Unknown]
  - Insomnia [Recovered/Resolved]
  - Device occlusion [Unknown]
